FAERS Safety Report 12371152 (Version 2)
Quarter: 2016Q3

REPORT INFORMATION
  Report Type: Spontaneous
  Country: DE (occurrence: DE)
  Receive Date: 20160516
  Receipt Date: 20160711
  Transmission Date: 20161109
  Serious: Yes (Other)
  Sender: FDA-Public Use
  Company Number: DE-SUN PHARMACEUTICAL INDUSTRIES LTD-2016RR-116462

PATIENT
  Age: 54 Year
  Sex: Female
  Weight: 64 kg

DRUGS (1)
  1. CEFUROX BASICS 500 MG FILMTABLETTEN [Suspect]
     Active Substance: CEFUROXIME
     Indication: ANIMAL BITE
     Dosage: 500 MG, BID
     Route: 048
     Dates: start: 20160408, end: 20160414

REACTIONS (4)
  - Diarrhoea [Recovering/Resolving]
  - Headache [Recovering/Resolving]
  - Dizziness [Recovering/Resolving]
  - Chills [Recovered/Resolved]

NARRATIVE: CASE EVENT DATE: 20160413
